FAERS Safety Report 22241626 (Version 2)
Quarter: 2023Q2

REPORT INFORMATION
  Report Type: Report from Study
  Country: FR (occurrence: FR)
  Receive Date: 20230421
  Receipt Date: 20230424
  Transmission Date: 20230722
  Serious: Yes (Life-Threatening, Hospitalization)
  Sender: FDA-Public Use
  Company Number: FR-002147023-NVSC2023FR032081

PATIENT
  Age: 73 Year
  Sex: Male
  Weight: 70 kg

DRUGS (21)
  1. NISEVOKITUG [Suspect]
     Active Substance: NISEVOKITUG
     Indication: Colorectal cancer metastatic
     Dosage: 2100 MG, Q2W
     Route: 042
     Dates: start: 20230209
  2. FLUOROURACIL [Suspect]
     Active Substance: FLUOROURACIL
     Indication: Colorectal cancer metastatic
     Dosage: 704 MG, Q2W
     Route: 042
     Dates: start: 20230209
  3. FLUOROURACIL [Suspect]
     Active Substance: FLUOROURACIL
     Dosage: 4224 MG, Q2W
     Route: 042
     Dates: start: 20230209
  4. IRINOTECAN [Suspect]
     Active Substance: IRINOTECAN
     Indication: Colorectal cancer metastatic
     Dosage: 316.8 MG, Q2W
     Route: 042
     Dates: start: 20230209
  5. BEVACIZUMAB [Suspect]
     Active Substance: BEVACIZUMAB
     Indication: Colorectal cancer metastatic
     Dosage: 350 MG, Q2W
     Route: 042
     Dates: start: 20230209, end: 20230209
  6. AMLODIPINE [Concomitant]
     Active Substance: AMLODIPINE BESYLATE
     Indication: Hypertension
     Dosage: UNK
     Route: 065
     Dates: start: 2003
  7. VALSARTAN [Concomitant]
     Active Substance: VALSARTAN
     Indication: Hypertension
     Dosage: UNK
     Route: 065
     Dates: start: 2003
  8. APREPITANT [Concomitant]
     Active Substance: APREPITANT
     Indication: Prophylaxis of nausea and vomiting
     Dosage: UNK
     Route: 065
     Dates: start: 20230209, end: 20230209
  9. APREPITANT [Concomitant]
     Active Substance: APREPITANT
     Dosage: UNK
     Route: 065
     Dates: start: 20230210, end: 20230211
  10. DEXERYL [Concomitant]
     Indication: Prophylaxis
     Dosage: UNK
     Route: 065
     Dates: start: 20230209
  11. IMODIUM [Concomitant]
     Active Substance: LOPERAMIDE HYDROCHLORIDE
     Indication: Prophylaxis against diarrhoea
     Dosage: UNK
     Route: 065
     Dates: start: 20230209
  12. OXYCODONE [Concomitant]
     Active Substance: OXYCODONE
     Indication: Pain prophylaxis
     Dosage: UNK
     Route: 065
     Dates: start: 20230209, end: 20230209
  13. OXYCODONE [Concomitant]
     Active Substance: OXYCODONE
     Indication: Abdominal pain
     Dosage: UNK
     Route: 065
     Dates: start: 20230210
  14. PRIMPERAN [Concomitant]
     Active Substance: METOCLOPRAMIDE HYDROCHLORIDE
     Indication: Prophylaxis of nausea and vomiting
     Dosage: UNK
     Route: 065
     Dates: start: 20230209
  15. SMECTA [Concomitant]
     Active Substance: MONTMORILLONITE
     Indication: Prophylaxis against diarrhoea
     Dosage: UNK
     Route: 065
     Dates: start: 20230209
  16. SODIUM BICARBONATE [Concomitant]
     Active Substance: SODIUM BICARBONATE
     Indication: Prophylaxis
     Dosage: UNK
     Route: 065
     Dates: start: 20230209
  17. RACECADOTRIL [Concomitant]
     Active Substance: RACECADOTRIL
     Indication: Prophylaxis against diarrhoea
     Dosage: UNK
     Route: 065
     Dates: start: 20230209
  18. DAFALGAN [Concomitant]
     Active Substance: ACETAMINOPHEN
     Indication: Pain prophylaxis
     Dosage: UNK
     Route: 065
     Dates: start: 20230218, end: 20230225
  19. LOVENOX [Concomitant]
     Active Substance: ENOXAPARIN SODIUM
     Indication: Thrombosis prophylaxis
     Dosage: UNK
     Route: 065
     Dates: start: 20230218, end: 20230318
  20. INNOHEP [Concomitant]
     Active Substance: TINZAPARIN SODIUM
     Indication: Pulmonary embolism
     Dosage: UNK
     Route: 065
     Dates: start: 20230331
  21. PIPERACILLIN SODIUM\TAZOBACTAM SODIUM [Concomitant]
     Active Substance: PIPERACILLIN SODIUM\TAZOBACTAM SODIUM
     Indication: Infection prophylaxis
     Dosage: UNK
     Route: 065
     Dates: start: 20230331

REACTIONS (3)
  - Gastric haemorrhage [Not Recovered/Not Resolved]
  - Large intestinal obstruction [Recovered/Resolved]
  - Abdominal pain [Not Recovered/Not Resolved]

NARRATIVE: CASE EVENT DATE: 20230210
